FAERS Safety Report 24024242 (Version 1)
Quarter: 2024Q2

REPORT INFORMATION
  Report Type: Report from Study
  Country: US (occurrence: US)
  Receive Date: 20240627
  Receipt Date: 20240627
  Transmission Date: 20240716
  Serious: No
  Sender: FDA-Public Use
  Company Number: US-ROCHE-3469547

PATIENT
  Age: 83 Year
  Sex: Female

DRUGS (18)
  1. ALECENSA [Suspect]
     Active Substance: ALECTINIB HYDROCHLORIDE
     Indication: Lung neoplasm malignant
     Dosage: 4 CAPSULES PO BID
     Route: 048
  2. ZOMETA [Concomitant]
     Active Substance: ZOLEDRONIC ACID
  3. XGEVA [Concomitant]
     Active Substance: DENOSUMAB
  4. ANASTROZOLE [Concomitant]
     Active Substance: ANASTROZOLE
  5. ADVAIR DISKUS [Concomitant]
     Active Substance: FLUTICASONE PROPIONATE\SALMETEROL XINAFOATE
  6. AMLODIPINE [Concomitant]
     Active Substance: AMLODIPINE BESYLATE
  7. BUDESONIDE [Concomitant]
     Active Substance: BUDESONIDE
  8. CEPHALEXIN [Concomitant]
     Active Substance: CEPHALEXIN
  9. CRANBERRY [Concomitant]
     Active Substance: CRANBERRY
  10. FUROSEMIDE [Concomitant]
     Active Substance: FUROSEMIDE
  11. LEVOTHYROXINE [Concomitant]
     Active Substance: LEVOTHYROXINE\LEVOTHYROXINE SODIUM
  12. LISINOPRIL [Concomitant]
     Active Substance: LISINOPRIL
  13. MONTELUKAST [Concomitant]
     Active Substance: MONTELUKAST SODIUM
  14. PREDNISONE [Concomitant]
     Active Substance: PREDNISONE
  15. PROAIR HFA [Concomitant]
     Active Substance: ALBUTEROL SULFATE
  16. RANITIDINE [Concomitant]
     Active Substance: RANITIDINE
  17. SIMVASTATIN [Concomitant]
     Active Substance: SIMVASTATIN
  18. TRIAMTERENE [Concomitant]
     Active Substance: TRIAMTERENE

REACTIONS (8)
  - Chronic kidney disease [Unknown]
  - Asthma [Unknown]
  - Essential hypertension [Unknown]
  - Hypothyroidism [Unknown]
  - Type IIa hyperlipidaemia [Unknown]
  - White blood cell count increased [Unknown]
  - Myalgia [Unknown]
  - Diarrhoea [Unknown]
